FAERS Safety Report 19054202 (Version 2)
Quarter: 2022Q4

REPORT INFORMATION
  Report Type: Report from Study
  Country: IT (occurrence: IT)
  Receive Date: 20210324
  Receipt Date: 20221118
  Transmission Date: 20230113
  Serious: Yes (Hospitalization, Other)
  Sender: FDA-Public Use
  Company Number: IT-TAKEDA-IT202010710

PATIENT
  Age: 60 Year
  Sex: Male
  Weight: 76 kg

DRUGS (16)
  1. TEDUGLUTIDE [Suspect]
     Active Substance: TEDUGLUTIDE
     Indication: Short-bowel syndrome
     Dosage: 2 MILLIGRAM, QD
     Route: 042
     Dates: start: 20191005, end: 202002
  2. TEDUGLUTIDE [Suspect]
     Active Substance: TEDUGLUTIDE
     Indication: Short-bowel syndrome
     Dosage: 2 MILLIGRAM, QD
     Route: 042
     Dates: start: 20191005, end: 202002
  3. TEDUGLUTIDE [Suspect]
     Active Substance: TEDUGLUTIDE
     Indication: Short-bowel syndrome
     Dosage: 2 MILLIGRAM, QD
     Route: 042
     Dates: start: 20191005, end: 202002
  4. TEDUGLUTIDE [Suspect]
     Active Substance: TEDUGLUTIDE
     Indication: Short-bowel syndrome
     Dosage: 2 MILLIGRAM, QD
     Route: 042
     Dates: start: 20191005, end: 202002
  5. TEDUGLUTIDE [Suspect]
     Active Substance: TEDUGLUTIDE
     Dosage: 2 MILLIGRAM/KILOGRAM
     Route: 042
     Dates: start: 20200318, end: 20201105
  6. TEDUGLUTIDE [Suspect]
     Active Substance: TEDUGLUTIDE
     Dosage: 2 MILLIGRAM/KILOGRAM
     Route: 042
     Dates: start: 20200318, end: 20201105
  7. TEDUGLUTIDE [Suspect]
     Active Substance: TEDUGLUTIDE
     Dosage: 2 MILLIGRAM/KILOGRAM
     Route: 042
     Dates: start: 20200318, end: 20201105
  8. TEDUGLUTIDE [Suspect]
     Active Substance: TEDUGLUTIDE
     Dosage: 2 MILLIGRAM/KILOGRAM
     Route: 042
     Dates: start: 20200318, end: 20201105
  9. LASIX [Concomitant]
     Active Substance: FUROSEMIDE
     Indication: Myocardial ischaemia
  10. COUMADIN [Concomitant]
     Active Substance: WARFARIN SODIUM
     Indication: Myocardial ischaemia
  11. ENOXAPARIN SODIUM [Concomitant]
     Active Substance: ENOXAPARIN SODIUM
     Indication: Thrombosis prophylaxis
  12. POTASSIUM CHLORIDE [Concomitant]
     Active Substance: POTASSIUM CHLORIDE
     Indication: Nutritional supplementation
     Dosage: 600 MILLIGRAM, TID
     Route: 048
     Dates: start: 20190924, end: 20191014
  13. IMODIUM [Concomitant]
     Active Substance: LOPERAMIDE HYDROCHLORIDE
     Indication: Prophylaxis
     Dosage: 2 MILLIGRAM, QD
     Route: 048
     Dates: start: 202003
  14. ELECTROLYTES NOS\MINERALS\SORBITOL [Concomitant]
     Active Substance: ELECTROLYTES NOS\MINERALS\SORBITOL
     Indication: Parenteral nutrition
     Dosage: 10 MILLIGRAM, 5/WEEK
     Route: 042
     Dates: start: 20171219
  15. CERNEVIT [Concomitant]
     Active Substance: VITAMINS
     Indication: Parenteral nutrition
  16. MEROPENEM [Concomitant]
     Active Substance: MEROPENEM
     Indication: Sepsis
     Dosage: 1 GRAM, BID
     Route: 042
     Dates: start: 20201122, end: 20201208

REACTIONS (3)
  - Renal failure [Recovered/Resolved]
  - Stoma site haemorrhage [Recovered/Resolved]
  - Product dose omission issue [Recovered/Resolved]

NARRATIVE: CASE EVENT DATE: 20200224
